FAERS Safety Report 6061235-8 (Version None)
Quarter: 2009Q1

REPORT INFORMATION
  Report Type: 
  Country: None (occurrence: None)
  Receive Date: 20090202
  Receipt Date: 20090126
  Transmission Date: 20090719
  Serious: Yes (Hospitalization)
  Sender: FDA-Public Use
  Company Number: US-GILEAD-2009-0020003

PATIENT
  Sex: Female

DRUGS (10)
  1. LETAIRIS [Suspect]
     Indication: PULMONARY ARTERIAL HYPERTENSION
     Route: 048
     Dates: start: 20081217, end: 20090111
  2. LASIX [Concomitant]
  3. COREG [Concomitant]
  4. NORVASC [Concomitant]
  5. SYNTHROID [Concomitant]
  6. PRILOSEC [Concomitant]
  7. IMDUR [Concomitant]
  8. LIPITOR [Concomitant]
  9. PLAVIX [Concomitant]
  10. ZYLOPRIM [Concomitant]

REACTIONS (3)
  - PLATELET PRODUCTION DECREASED [None]
  - RENAL FAILURE [None]
  - TRANSFUSION [None]
